FAERS Safety Report 10109430 (Version 2)
Quarter: 2014Q2

REPORT INFORMATION
  Report Type: Spontaneous
  Country: JP (occurrence: JP)
  Receive Date: 20140425
  Receipt Date: 20140602
  Transmission Date: 20141212
  Serious: Yes (Death)
  Sender: FDA-Public Use
  Company Number: JP-ROCHE-1390303

PATIENT
  Age: 42 Year
  Sex: Male

DRUGS (2)
  1. XOLAIR [Suspect]
     Indication: ASTHMA
     Route: 058
     Dates: start: 20120322
  2. XOLAIR [Suspect]
     Route: 058
     Dates: start: 20140114, end: 20140114

REACTIONS (2)
  - Pneumonia escherichia [Fatal]
  - Sepsis [Fatal]
